FAERS Safety Report 14079019 (Version 1)
Quarter: 2017Q4

REPORT INFORMATION
  Report Type: Spontaneous
  Country: GR (occurrence: GR)
  Receive Date: 20171012
  Receipt Date: 20171012
  Transmission Date: 20180321
  Serious: Yes (Hospitalization)
  Sender: FDA-Public Use
  Company Number: GR-ALLERGAN-1757412US

PATIENT
  Sex: Female

DRUGS (1)
  1. ASENAPINE MALEATE - BP [Suspect]
     Active Substance: ASENAPINE MALEATE
     Indication: PRODUCT USED FOR UNKNOWN INDICATION
     Route: 048

REACTIONS (5)
  - Palpitations [Unknown]
  - Incorrect route of drug administration [Unknown]
  - Sedation [Unknown]
  - Gait disturbance [Unknown]
  - Dysarthria [Unknown]
